FAERS Safety Report 8865475 (Version 1)
Quarter: 2012Q4

REPORT INFORMATION
  Report Type: 
  Country: US (occurrence: US)
  Receive Date: 20121024
  Receipt Date: 20121024
  Transmission Date: 20130627
  Serious: No
  Sender: FDA-Public Use
  Company Number: US-AMGEN-USASP2012003292

PATIENT
  Age: 44 Year
  Sex: Male
  Weight: 81.63 kg

DRUGS (12)
  1. ENBREL [Suspect]
     Indication: PRODUCT USED FOR UNKNOWN INDICATION
     Dosage: 50 mg, qwk
     Route: 058
  2. FOSAMAX [Concomitant]
     Dosage: 70 mg, UNK
     Route: 048
  3. MULTIVITAMIN                       /02160401/ [Concomitant]
     Dosage: UNK
     Route: 048
  4. NIACIN [Concomitant]
     Dosage: 125 mg, UNK
     Route: 048
  5. VITAMIN E                          /00110501/ [Concomitant]
     Dosage: 1000 unit, UNK
     Route: 048
  6. FISH OIL [Concomitant]
     Dosage: 1000 mg, UNK
     Route: 048
  7. VITAMIN B12                        /00056201/ [Concomitant]
     Dosage: 1000 UNK, UNK
     Route: 048
  8. VITAMIN B6 [Concomitant]
     Dosage: 500 mg, UNK
     Route: 048
  9. VITAMIN D3 [Concomitant]
     Dosage: UNK
     Route: 048
  10. CALCIUM                            /00060701/ [Concomitant]
     Dosage: UNK
     Route: 048
  11. FOLIC ACID [Concomitant]
     Dosage: 20 mg, UNK
     Route: 048
  12. ASPIRIN [Concomitant]
     Dosage: 325 mg, UNK
     Route: 048

REACTIONS (4)
  - Road traffic accident [Recovered/Resolved]
  - Contusion [Recovered/Resolved]
  - Oedema peripheral [Recovered/Resolved]
  - Nasopharyngitis [Recovered/Resolved]
